FAERS Safety Report 9014827 (Version 1)
Quarter: 2013Q1

REPORT INFORMATION
  Report Type: Spontaneous
  Country: US (occurrence: US)
  Receive Date: 20130116
  Receipt Date: 20130116
  Transmission Date: 20140127
  Serious: Yes (Hospitalization)
  Sender: FDA-Public Use
  Company Number: US-009507513-1301USA005527

PATIENT
  Sex: 0

DRUGS (1)
  1. INVANZ [Suspect]
     Dosage: 1 G, QD
     Route: 042

REACTIONS (2)
  - Convulsion [Recovered/Resolved]
  - Overdose [Unknown]
